FAERS Safety Report 20749159 (Version 1)
Quarter: 2022Q2

REPORT INFORMATION
  Report Type: Spontaneous
  Country: US (occurrence: US)
  Receive Date: 20220426
  Receipt Date: 20220426
  Transmission Date: 20220721
  Serious: Yes (Other)
  Sender: FDA-Public Use
  Company Number: US-BRISTOL-MYERS SQUIBB COMPANY-2022-025295

PATIENT
  Age: 91 Year
  Sex: Female
  Weight: 57.1 kg

DRUGS (1)
  1. REVLIMID [Suspect]
     Active Substance: LENALIDOMIDE
     Indication: Plasma cell myeloma
     Dosage: EVERY OTHER DAY DAYS 1-21 EVERY 28 DAYS
     Route: 048
     Dates: start: 20200720, end: 20220419

REACTIONS (1)
  - Malignant neoplasm progression [Unknown]
